FAERS Safety Report 6744182-5 (Version None)
Quarter: 2010Q2

REPORT INFORMATION
  Report Type: 
  Country: None (occurrence: None)
  Receive Date: 20100527
  Receipt Date: 20100514
  Transmission Date: 20101027
  Serious: Yes (Other)
  Sender: FDA-Public Use
  Company Number: DE-SANOFI-AVENTIS-2010SA017099

PATIENT
  Age: 28 Year
  Sex: Female
  Weight: 53 kg

DRUGS (2)
  1. MULTAQ [Suspect]
     Route: 048
     Dates: start: 20100309, end: 20100419
  2. MARCUMAR [Concomitant]
     Indication: THROMBOSIS
     Route: 048

REACTIONS (3)
  - ATRIOVENTRICULAR BLOCK COMPLETE [None]
  - ATRIOVENTRICULAR BLOCK SECOND DEGREE [None]
  - PACEMAKER GENERATED RHYTHM [None]
